FAERS Safety Report 22150247 (Version 1)
Quarter: 2023Q1

REPORT INFORMATION
  Report Type: Spontaneous
  Country: US (occurrence: US)
  Receive Date: 20230329
  Receipt Date: 20230329
  Transmission Date: 20230418
  Serious: Yes (Hospitalization)
  Sender: FDA-Public Use
  Company Number: US-AYTU BIOPHARMA, INC.-2023AYT000016

PATIENT
  Age: 3 Year
  Sex: Female

DRUGS (1)
  1. ADZENYS XR-ODT [Suspect]
     Active Substance: AMPHETAMINE
     Indication: Accidental exposure to product by child
     Dosage: UNK
     Route: 065
     Dates: start: 20190820

REACTIONS (6)
  - Feeding disorder [None]
  - Accidental exposure to product by child [Unknown]
  - Heart rate increased [None]
  - Insomnia [None]
  - Logorrhoea [None]
  - Hallucination, visual [None]

NARRATIVE: CASE EVENT DATE: 20190820
